FAERS Safety Report 5278390-X (Version None)
Quarter: 2007Q1

REPORT INFORMATION
  Report Type: 
  Country: None (occurrence: None)
  Receive Date: 20070323
  Receipt Date: 20070306
  Transmission Date: 20070707
  Serious: Yes (Life-Threatening)
  Sender: FDA-Public Use
  Company Number: 15878

PATIENT
  Age: 68 Year
  Sex: Male

DRUGS (12)
  1. METHOTREXATE [Suspect]
     Indication: NON-HODGKIN'S LYMPHOMA
     Dosage: 2800 MG FREQ UNK IV
     Route: 042
     Dates: start: 20070123, end: 20070124
  2. ERTAPENEM [Suspect]
     Indication: PNEUMONIA
     Dosage: 1 G DAILY IV
     Route: 042
     Dates: start: 20070119, end: 20070124
  3. EPIRUBICIN [Concomitant]
  4. ETOPOSIDE [Concomitant]
  5. FOLINIC ACID [Concomitant]
  6. IFOSFAMIDE [Concomitant]
  7. MESNA [Concomitant]
  8. METHOTREXATE [Concomitant]
  9. OMEPRAZOLE [Concomitant]
  10. PARACETAMOL [Concomitant]
  11. TAZOCIN [Concomitant]
  12. TINZAPARIN [Concomitant]

REACTIONS (5)
  - BONE MARROW FAILURE [None]
  - DRUG CLEARANCE DECREASED [None]
  - DRUG INTERACTION [None]
  - RENAL IMPAIRMENT [None]
  - STOMATITIS [None]
